FAERS Safety Report 5016202-X (Version None)
Quarter: 2006Q2

REPORT INFORMATION
  Report Type: 
  Country: None (occurrence: None)
  Receive Date: 20060414
  Receipt Date: 20060124
  Transmission Date: 20061013
  Serious: No
  Sender: FDA-Public Use
  Company Number: 2006SP000421

PATIENT
  Age: 58 Year
  Sex: Male
  Weight: 79.3795 kg

DRUGS (6)
  1. LUNESTA [Suspect]
     Indication: STRESS
     Dosage: SEE IMAGE
     Route: 048
     Dates: start: 20060101
  2. LUNESTA [Suspect]
     Indication: STRESS
     Dosage: SEE IMAGE
     Route: 048
     Dates: start: 20060119
  3. CLARINEX [Concomitant]
  4. NASALCROM [Concomitant]
  5. BENADRYL [Concomitant]
  6. TYLENOL (CAPLET) [Concomitant]

REACTIONS (1)
  - MIDDLE INSOMNIA [None]
